FAERS Safety Report 5928170-4 (Version None)
Quarter: 2008Q4

REPORT INFORMATION
  Report Type: 
  Country: None (occurrence: None)
  Receive Date: 20081023
  Receipt Date: 20081013
  Transmission Date: 20090506
  Serious: Yes (Other)
  Sender: FDA-Public Use
  Company Number: PHHY2008BR24738

PATIENT

DRUGS (5)
  1. TEGRETOL [Suspect]
     Indication: EPILEPSY
     Dosage: 200 MG, BID
     Route: 048
     Dates: start: 20050101, end: 20081012
  2. TEGRETOL [Suspect]
     Dosage: 1.5.5 TABLETS BID
  3. TEGRETOL [Suspect]
     Dosage: UNK
     Dates: start: 20081012
  4. PHENOBARBITAL TAB [Concomitant]
     Indication: EPILEPSY
     Dosage: 100 MG, BID
     Route: 048
     Dates: start: 20050101
  5. PHENOBARBITAL TAB [Concomitant]
     Dosage: 100 MG, QD
     Dates: start: 20060101

REACTIONS (12)
  - CONVULSION [None]
  - GINGIVAL INFECTION [None]
  - INFECTION [None]
  - INSOMNIA [None]
  - MEMORY IMPAIRMENT [None]
  - MUSCULAR WEAKNESS [None]
  - PETIT MAL EPILEPSY [None]
  - ROTAVIRUS INFECTION [None]
  - SLEEP PHASE RHYTHM DISTURBANCE [None]
  - STARING [None]
  - TOOTH INFECTION [None]
  - WEIGHT DECREASED [None]
